FAERS Safety Report 18058871 (Version 2)
Quarter: 2020Q3

REPORT INFORMATION
  Report Type: Spontaneous
  Country: US (occurrence: US)
  Receive Date: 20200723
  Receipt Date: 20200827
  Transmission Date: 20201103
  Serious: No
  Sender: FDA-Public Use
  Company Number: US-ALNYLAM PHARMACEUTICALS, INC.-ALN-2020-001213

PATIENT

DRUGS (3)
  1. HAEM ARGINATE [Concomitant]
     Indication: PRODUCT USED FOR UNKNOWN INDICATION
     Dosage: UNK
  2. HEMATIN [Concomitant]
     Active Substance: HEMATIN
     Indication: PRODUCT USED FOR UNKNOWN INDICATION
  3. GIVLAARI [Suspect]
     Active Substance: GIVOSIRAN SODIUM
     Indication: PORPHYRIA ACUTE
     Dosage: UNK
     Route: 058

REACTIONS (2)
  - Porphyrins urine decreased [Unknown]
  - Porphyria acute [Unknown]
